FAERS Safety Report 9651166 (Version 1)
Quarter: 2013Q4

REPORT INFORMATION
  Report Type: Report from Study
  Country: US (occurrence: US)
  Receive Date: 20131029
  Receipt Date: 20131029
  Transmission Date: 20140711
  Serious: Yes (Death)
  Sender: FDA-Public Use
  Company Number: US-CELGENEUS-163-21880-13104937

PATIENT
  Age: 78 Year
  Sex: Male
  Weight: 67.6 kg

DRUGS (19)
  1. REVLIMID [Suspect]
     Indication: PLASMA CELL MYELOMA
     Dosage: 10 MILLIGRAM
     Route: 048
     Dates: start: 20120806, end: 20120902
  2. REVLIMID [Suspect]
     Dosage: 25 MILLIGRAM
     Route: 048
     Dates: start: 20120903, end: 20131021
  3. DEXAMETHASONE [Suspect]
     Indication: PLASMA CELL MYELOMA
     Dosage: 40 MILLIGRAM
     Route: 048
     Dates: start: 20130806, end: 20131021
  4. CALCIUM CARBONATE + VITAMIN D [Concomitant]
     Indication: PRODUCT USED FOR UNKNOWN INDICATION
     Dosage: 500MG/200MG
     Route: 065
     Dates: start: 20120703
  5. COLCHICINE [Concomitant]
     Indication: PRODUCT USED FOR UNKNOWN INDICATION
     Route: 065
     Dates: start: 20120716
  6. ASPIRIN [Concomitant]
     Indication: PRODUCT USED FOR UNKNOWN INDICATION
     Route: 048
     Dates: start: 20120703
  7. OMEPRAZOLE [Concomitant]
     Indication: PRODUCT USED FOR UNKNOWN INDICATION
     Route: 065
     Dates: start: 20120716, end: 20120904
  8. ZOFRAN [Concomitant]
     Indication: ADVERSE EVENT
     Route: 065
     Dates: start: 20120716
  9. MILK OF MAGNESIA [Concomitant]
     Indication: ADVERSE EVENT
     Route: 065
     Dates: start: 20120801
  10. LISINOPRIL [Concomitant]
     Indication: ADVERSE EVENT
     Route: 065
     Dates: start: 20120716
  11. SMOOTH MOVE TEA [Concomitant]
     Indication: ADVERSE EVENT
     Route: 065
     Dates: start: 20120804
  12. COLACE [Concomitant]
     Indication: ADVERSE EVENT
     Route: 065
     Dates: start: 20120804
  13. AMBIEN [Concomitant]
     Indication: ADVERSE EVENT
     Route: 065
     Dates: start: 20120813
  14. BENADRYL [Concomitant]
     Indication: ADVERSE EVENT
     Route: 065
     Dates: start: 20121001
  15. FLUCONAZOLE [Concomitant]
     Indication: ADVERSE EVENT
     Route: 065
     Dates: start: 20121001
  16. CALCITRIOL [Concomitant]
     Indication: ADVERSE EVENT
     Route: 065
     Dates: start: 20120827
  17. SENNA [Concomitant]
     Indication: ADVERSE EVENT
     Route: 065
     Dates: start: 20120804
  18. ATORVASTATIN [Concomitant]
     Indication: ADVERSE EVENT
     Route: 065
     Dates: start: 20120823
  19. ALLOPURINOL [Concomitant]
     Indication: PRODUCT USED FOR UNKNOWN INDICATION
     Route: 065
     Dates: start: 20130124

REACTIONS (1)
  - Death [Fatal]
